FAERS Safety Report 8343546 (Version 2)
Quarter: 2013Q1

REPORT INFORMATION
  Report Type: Spontaneous
  Country: US (occurrence: US)
  Receive Date: 20120119
  Receipt Date: 20130117
  Transmission Date: 20140127
  Serious: Yes (Other)
  Sender: FDA-Public Use
  Company Number: US-ROCHE-784559

PATIENT
  Age: 27 Year
  Sex: Female
  Weight: 52.21 kg

DRUGS (2)
  1. ACCUTANE [Suspect]
     Indication: ACNE
     Route: 048
     Dates: start: 199704, end: 199708
  2. TRI-LEVLEN [Concomitant]
     Indication: CONTRACEPTION

REACTIONS (11)
  - Colitis ulcerative [Unknown]
  - Inflammatory bowel disease [Unknown]
  - Emotional distress [Unknown]
  - Suicidal ideation [Unknown]
  - Depression [Unknown]
  - Irritable bowel syndrome [Unknown]
  - Dry eye [Unknown]
  - Lip dry [Unknown]
  - Nasal dryness [Unknown]
  - Blood cholesterol increased [Recovering/Resolving]
  - Low density lipoprotein increased [Recovering/Resolving]
